FAERS Safety Report 6153817-X (Version None)
Quarter: 2009Q2

REPORT INFORMATION
  Report Type: 
  Country: None (occurrence: None)
  Receive Date: 20090414
  Receipt Date: 20070905
  Transmission Date: 20091009
  Serious: Yes (Hospitalization)
  Sender: FDA-Public Use
  Company Number: US-ASTRAZENECA-2007UW08818

PATIENT
  Age: 17183 Day
  Sex: Female
  Weight: 72.5 kg

DRUGS (36)
  1. SEROQUEL [Suspect]
     Indication: AFFECTIVE DISORDER
     Route: 048
     Dates: start: 19990101, end: 20020101
  2. SEROQUEL [Suspect]
     Indication: ANXIETY
     Route: 048
     Dates: start: 19990101, end: 20020101
  3. SEROQUEL [Suspect]
     Indication: PSYCHOTIC DISORDER
     Route: 048
     Dates: start: 19990101, end: 20020101
  4. SEROQUEL [Suspect]
     Indication: CONFUSIONAL STATE
     Route: 048
     Dates: start: 19990101, end: 20020101
  5. SEROQUEL [Suspect]
     Dosage: 125-200 MG
     Route: 048
     Dates: start: 20040101
  6. SEROQUEL [Suspect]
     Dosage: 125-200 MG
     Route: 048
     Dates: start: 20040101
  7. SEROQUEL [Suspect]
     Dosage: 125-200 MG
     Route: 048
     Dates: start: 20040101
  8. SEROQUEL [Suspect]
     Dosage: 125-200 MG
     Route: 048
     Dates: start: 20040101
  9. SEROQUEL [Suspect]
     Dosage: 25MG-400MG
     Route: 048
     Dates: start: 19990121
  10. SEROQUEL [Suspect]
     Dosage: 25MG-400MG
     Route: 048
     Dates: start: 19990121
  11. SEROQUEL [Suspect]
     Dosage: 25MG-400MG
     Route: 048
     Dates: start: 19990121
  12. SEROQUEL [Suspect]
     Dosage: 25MG-400MG
     Route: 048
     Dates: start: 19990121
  13. ABILIFY [Concomitant]
  14. HALDOL [Concomitant]
  15. TRILAFON [Concomitant]
  16. DEPAKOTE [Concomitant]
  17. COGENTIN [Concomitant]
  18. ZYPREXA [Concomitant]
     Indication: AFFECTIVE DISORDER
  19. ROBITUSSIN [Concomitant]
  20. LIPITOR [Concomitant]
  21. ZOLOFT [Concomitant]
  22. GLUCOTROL [Concomitant]
  23. NEXIUM [Concomitant]
  24. CELEBREX [Concomitant]
  25. LOVENOX [Concomitant]
  26. ATIVAN [Concomitant]
  27. VICODIN [Concomitant]
  28. RISPERDAL [Concomitant]
  29. FOSAMAX [Concomitant]
  30. WELLBUTRIN [Concomitant]
  31. EVISTA [Concomitant]
  32. LESCOL [Concomitant]
  33. COLACE [Concomitant]
  34. PRANDIN [Concomitant]
  35. SIMVASTATIN [Concomitant]
  36. METFORMIN HCL [Concomitant]

REACTIONS (37)
  - ABDOMINAL PAIN [None]
  - ABDOMINAL TENDERNESS [None]
  - APHONIA [None]
  - ARTHRALGIA [None]
  - BACK PAIN [None]
  - BIPOLAR DISORDER [None]
  - CHEST PAIN [None]
  - CHOKING [None]
  - COCCYDYNIA [None]
  - CONFUSIONAL STATE [None]
  - CONSTIPATION [None]
  - CONVULSION [None]
  - COUGH [None]
  - DEEP VEIN THROMBOSIS [None]
  - DELUSION [None]
  - DISSOCIATION [None]
  - DRUG HYPERSENSITIVITY [None]
  - EYE PAIN [None]
  - EYE SWELLING [None]
  - FATIGUE [None]
  - GASTRITIS [None]
  - HAEMORRHOIDS [None]
  - HALLUCINATION [None]
  - HIATUS HERNIA [None]
  - HYPOAESTHESIA [None]
  - MANIA [None]
  - NASOPHARYNGITIS [None]
  - NAUSEA [None]
  - OCULAR HYPERAEMIA [None]
  - OROPHARYNGEAL PAIN [None]
  - PAIN IN EXTREMITY [None]
  - PARANOIA [None]
  - PSYCHOTIC DISORDER [None]
  - RESPIRATORY TRACT CONGESTION [None]
  - ROTATOR CUFF SYNDROME [None]
  - TYPE 2 DIABETES MELLITUS [None]
  - VOMITING [None]
